FAERS Safety Report 4980337-8 (Version None)
Quarter: 2006Q2

REPORT INFORMATION
  Report Type: 
  Country: None (occurrence: None)
  Receive Date: 20060424
  Receipt Date: 20060413
  Transmission Date: 20061013
  Serious: Yes (Other)
  Sender: FDA-Public Use
  Company Number: GB-JNJFOC-20060301444

PATIENT
  Sex: Male
  Weight: 43 kg

DRUGS (7)
  1. REMICADE [Suspect]
     Route: 042
  2. REMICADE [Suspect]
     Route: 042
  3. REMICADE [Suspect]
     Route: 042
  4. METHOTREXATE [Concomitant]
     Route: 042
  5. LANSOPRAZOLE [Concomitant]
     Route: 048
  6. SUCRALFATE [Concomitant]
     Route: 048
  7. CYCLOSPORINE [Concomitant]
     Route: 048

REACTIONS (1)
  - MYOCLONUS [None]
